FAERS Safety Report 11161052 (Version 1)
Quarter: 2015Q2

REPORT INFORMATION
  Report Type: Spontaneous
  Country: US (occurrence: US)
  Receive Date: 20150604
  Receipt Date: 20150604
  Transmission Date: 20150821
  Serious: No
  Sender: FDA-Public Use
  Company Number: US-SA-2014SA076666

PATIENT
  Age: 45 Year
  Sex: Female

DRUGS (26)
  1. BACTROBAN [Concomitant]
     Active Substance: MUPIROCIN\MUPIROCIN CALCIUM
  2. VITAMIN D3 [Concomitant]
     Active Substance: CHOLECALCIFEROL
  3. PANTOPRAZOLE [Concomitant]
     Active Substance: PANTOPRAZOLE SODIUM
  4. ALL OTHER THERAPEUTIC PRODUCTS [Concomitant]
     Active Substance: UNSPECIFIED INGREDIENT
  5. IRON [Concomitant]
     Active Substance: IRON
  6. FENOFIBRATE. [Concomitant]
     Active Substance: FENOFIBRATE
  7. SONATA [Concomitant]
     Active Substance: ZALEPLON
  8. VITAMIN B12 [Concomitant]
     Active Substance: CYANOCOBALAMIN
  9. NYSTATIN. [Concomitant]
     Active Substance: NYSTATIN
  10. OXYBUTYN [Concomitant]
  11. FLOVENT [Concomitant]
     Active Substance: FLUTICASONE PROPIONATE
     Route: 055
  12. ONGLYZA [Concomitant]
     Active Substance: SAXAGLIPTIN HYDROCHLORIDE
  13. LUVOX [Concomitant]
     Active Substance: FLUVOXAMINE MALEATE
  14. CALCIUM [Concomitant]
     Active Substance: CALCIUM
  15. FEXOFENADINE [Concomitant]
     Active Substance: FEXOFENADINE\FEXOFENADINE HYDROCHLORIDE
  16. LANTUS SOLOSTAR [Suspect]
     Active Substance: INSULIN GLARGINE
     Indication: TYPE 2 DIABETES MELLITUS
     Dosage: DOSE:20 UNIT(S)
     Route: 058
     Dates: start: 20130930
  17. DIFLUCAN [Concomitant]
     Active Substance: FLUCONAZOLE
  18. CLOTRIMAZOLE. [Concomitant]
     Active Substance: CLOTRIMAZOLE
  19. TRAZODONE [Concomitant]
     Active Substance: TRAZODONE HYDROCHLORIDE
  20. LANTUS SOLOSTAR [Suspect]
     Active Substance: INSULIN GLARGINE
     Indication: TYPE 2 DIABETES MELLITUS
     Dosage: DOSE:40 UNIT(S)
     Route: 058
     Dates: start: 201310
  21. LANTUS SOLOSTAR [Suspect]
     Active Substance: INSULIN GLARGINE
     Indication: TYPE 2 DIABETES MELLITUS
     Dosage: DOSE:20 UNIT(S)
     Route: 058
     Dates: start: 20130930
  22. SUMATRIPTAN. [Concomitant]
     Active Substance: SUMATRIPTAN
  23. FUROSEMIDE. [Concomitant]
     Active Substance: FUROSEMIDE
  24. PLAVIX [Concomitant]
     Active Substance: CLOPIDOGREL BISULFATE
  25. ALCOHOL. [Concomitant]
     Active Substance: ALCOHOL
  26. LISINOPRIL. [Concomitant]
     Active Substance: LISINOPRIL

REACTIONS (2)
  - Injection site pain [Unknown]
  - Injection site haemorrhage [Recovered/Resolved]
